FAERS Safety Report 26021685 (Version 1)
Quarter: 2025Q4

REPORT INFORMATION
  Report Type: Spontaneous
  Country: CH (occurrence: CH)
  Receive Date: 20251110
  Receipt Date: 20251110
  Transmission Date: 20260117
  Serious: Yes (Death, Life-Threatening, Hospitalization, Other)
  Sender: ACCORD
  Company Number: CH-Accord-512039

PATIENT
  Age: 20 Year
  Sex: Male
  Weight: 53 kg

DRUGS (5)
  1. AMPHETAMINE [Suspect]
     Active Substance: AMPHETAMINE
     Indication: Product used for unknown indication
  2. CLONAZEPAM [Suspect]
     Active Substance: CLONAZEPAM
     Indication: Product used for unknown indication
  3. ETONITAZENE [Suspect]
     Active Substance: ETONITAZENE
     Indication: Product used for unknown indication
  4. ALCOHOL [Suspect]
     Active Substance: ALCOHOL
     Indication: Product used for unknown indication
  5. CANNABIS SATIVA SUBSP. INDICA TOP [Concomitant]
     Active Substance: CANNABIS SATIVA SUBSP. INDICA TOP

REACTIONS (4)
  - Toxicity to various agents [Fatal]
  - Brain oedema [Fatal]
  - Pulmonary oedema [Fatal]
  - Respiratory depression [Fatal]
